FAERS Safety Report 10766863 (Version 1)
Quarter: 2015Q1

REPORT INFORMATION
  Report Type: Spontaneous
  Country: NO (occurrence: NO)
  Receive Date: 20150205
  Receipt Date: 20150205
  Transmission Date: 20150721
  Serious: Yes (Other)
  Sender: FDA-Public Use
  Company Number: NO-ASTRAZENECA-2015SE09027

PATIENT
  Age: 16 Year
  Sex: Male

DRUGS (1)
  1. QUETIAPINE TEVA [Suspect]
     Active Substance: QUETIAPINE
     Route: 065

REACTIONS (2)
  - Headache [Not Recovered/Not Resolved]
  - Blindness [Recovered/Resolved]
